FAERS Safety Report 6425377-7 (Version None)
Quarter: 2009Q4

REPORT INFORMATION
  Report Type: 
  Country: None (occurrence: None)
  Receive Date: 20091103
  Receipt Date: 20091030
  Transmission Date: 20100525
  Serious: Yes (Hospitalization)
  Sender: FDA-Public Use
  Company Number: B0600870A

PATIENT
  Age: 64 Year
  Sex: Male

DRUGS (4)
  1. AUGMENTIN [Suspect]
     Indication: BRONCHITIS
     Dosage: 1G THREE TIMES PER DAY
     Route: 048
     Dates: start: 20090403, end: 20090411
  2. LIPANTHYL [Suspect]
     Dosage: 145MG UNKNOWN
     Route: 048
     Dates: start: 20080601
  3. LOXEN LP [Concomitant]
     Dosage: 50MG UNKNOWN
     Route: 065
     Dates: start: 20080201
  4. CELESTENE [Concomitant]
     Indication: BRONCHITIS
     Route: 048
     Dates: start: 20090403, end: 20090408

REACTIONS (5)
  - CHOLANGITIS [None]
  - CYTOLYTIC HEPATITIS [None]
  - HEPATITIS CHOLESTATIC [None]
  - JAUNDICE [None]
  - PRURITUS [None]
